FAERS Safety Report 10007907 (Version 3)
Quarter: 2014Q2

REPORT INFORMATION
  Report Type: Report from Study
  Country: US (occurrence: US)
  Receive Date: 20140313
  Receipt Date: 20140610
  Transmission Date: 20141212
  Serious: Yes (Hospitalization, Other)
  Sender: FDA-Public Use
  Company Number: US-BRISTOL-MYERS SQUIBB COMPANY-20417887

PATIENT
  Sex: 0

DRUGS (5)
  1. ARIPIPRAZOLE [Suspect]
     Indication: DEPRESSION
     Dosage: LAST DATE:19FEB2014
     Dates: start: 20131216
  2. ULTRAM [Concomitant]
  3. LEVOFLOXACIN [Concomitant]
  4. BACLOFEN [Concomitant]
  5. TORADOL [Concomitant]

REACTIONS (1)
  - Pneumonia [Recovered/Resolved]
